FAERS Safety Report 12584115 (Version 1)
Quarter: 2016Q3

REPORT INFORMATION
  Report Type: Spontaneous
  Country: US (occurrence: US)
  Receive Date: 20160722
  Receipt Date: 20160722
  Transmission Date: 20161109
  Serious: Yes (Life-Threatening)
  Sender: FDA-Public Use
  Company Number: PHEH2016US017932

PATIENT
  Sex: Female
  Weight: 49.89 kg

DRUGS (2)
  1. FLUOXETINE [Concomitant]
     Active Substance: FLUOXETINE HYDROCHLORIDE
     Indication: PRODUCT USED FOR UNKNOWN INDICATION
     Route: 065
  2. LAMISIL [Suspect]
     Active Substance: TERBINAFINE HYDROCHLORIDE
     Indication: TINEA PEDIS
     Dosage: 125 MG, UNK
     Route: 048

REACTIONS (11)
  - Abdominal pain upper [Unknown]
  - Diarrhoea [Unknown]
  - Dysstasia [Unknown]
  - Haemorrhoids [Unknown]
  - Cough [Unknown]
  - Feeling abnormal [Unknown]
  - Feeding disorder [Unknown]
  - Functional gastrointestinal disorder [Unknown]
  - Constipation [Unknown]
  - Nasopharyngitis [Unknown]
  - Malaise [Unknown]
